FAERS Safety Report 6957413-3 (Version None)
Quarter: 2010Q3

REPORT INFORMATION
  Report Type: 
  Country: None (occurrence: None)
  Receive Date: 20100826
  Receipt Date: 20100816
  Transmission Date: 20110219
  Serious: Yes (Hospitalization, Disabling, Other)
  Sender: FDA-Public Use
  Company Number: UTC-001344

PATIENT
  Age: 67 Year
  Sex: Male
  Weight: 106.8 kg

DRUGS (24)
  1. TYVASO [Suspect]
     Indication: PULMONARY ARTERIAL HYPERTENSION
     Dosage: 216 MCG (54 MCG,4 IN 1 D),INHALATION
     Route: 055
     Dates: start: 20100329, end: 20100716
  2. METOPROLOL SUCCINATE [Concomitant]
  3. ULORIC [Concomitant]
  4. ALLOPURINOL [Concomitant]
  5. PEPCID [Concomitant]
  6. TORSEMIDE [Concomitant]
  7. COUMADIN [Concomitant]
  8. MORPHINE SULFATE INJ [Concomitant]
  9. COLCHICINE (COLCHICINE) [Concomitant]
  10. ADCIRCA [Concomitant]
  11. FOLIC ACID [Concomitant]
  12. DIAZEPAM [Concomitant]
  13. COZAAR [Concomitant]
  14. PREDNISONE [Concomitant]
  15. PORK INSULIN (INSULIN) [Concomitant]
  16. FISH OIL (FISH OIL) [Concomitant]
  17. VITAMIN D [Concomitant]
  18. NIACIN [Concomitant]
  19. MULTIVITAMIN (MULTIVITAMIN /00831701/) [Concomitant]
  20. FERROUS SULFATE TAB [Concomitant]
  21. ENDOCET (OXYCOCET) [Concomitant]
  22. ACTOS [Concomitant]
  23. POTASSIUM CHLORIDE [Concomitant]
  24. OXYGEN (OXYGEN) [Concomitant]

REACTIONS (3)
  - HAEMOPTYSIS [None]
  - LUNG INFILTRATION [None]
  - NO THERAPEUTIC RESPONSE [None]
